FAERS Safety Report 15543659 (Version 1)
Quarter: 2018Q4

REPORT INFORMATION
  Report Type: Spontaneous
  Country: US (occurrence: US)
  Receive Date: 20181023
  Receipt Date: 20181023
  Transmission Date: 20190205
  Serious: No
  Sender: FDA-Public Use
  Company Number: US-VIFOR (INTERNATIONAL) INC.-VIT-2018-09918

PATIENT
  Sex: Male

DRUGS (17)
  1. BASAGLAR [Concomitant]
     Active Substance: INSULIN GLARGINE
     Dosage: 100 UNIT
     Dates: start: 20180801
  2. COLCHICINE. [Concomitant]
     Active Substance: COLCHICINE
     Dates: start: 20180801
  3. PROZAC [Concomitant]
     Active Substance: FLUOXETINE HYDROCHLORIDE
     Dates: start: 20180801
  4. VENLAFAXINE [Concomitant]
     Active Substance: VENLAFAXINE HYDROCHLORIDE
     Dates: start: 20180801
  5. VITAMIN B12 [Concomitant]
     Active Substance: CYANOCOBALAMIN
     Dates: start: 20180801
  6. BUMETANIDE. [Concomitant]
     Active Substance: BUMETANIDE
     Dates: start: 20180801
  7. HUMALOG [Concomitant]
     Active Substance: INSULIN LISPRO
     Dates: start: 20180801
  8. ALLOPURINOL. [Concomitant]
     Active Substance: ALLOPURINOL
     Dates: start: 20180801
  9. ASPIRIN. [Concomitant]
     Active Substance: ASPIRIN
     Dates: start: 20180801
  10. ATORVASTATIN [Concomitant]
     Active Substance: ATORVASTATIN
     Dates: start: 20180801
  11. MAGNESIUM [Concomitant]
     Active Substance: MAGNESIUM
     Dates: start: 20180801
  12. VELTASSA [Suspect]
     Active Substance: PATIROMER
     Indication: HYPERKALAEMIA
     Route: 048
     Dates: start: 20180803
  13. ALBUTEROL. [Concomitant]
     Active Substance: ALBUTEROL
     Dosage: 0.63MG/3
     Dates: start: 20180801
  14. DOXYCYCL HYC [Concomitant]
     Dates: start: 20180801
  15. AMLODIPINE [Concomitant]
     Active Substance: AMLODIPINE BESYLATE
     Dates: start: 20180801
  16. OMEPRAZOLE. [Concomitant]
     Active Substance: OMEPRAZOLE
     Dates: start: 20180801
  17. VALSARTAN. [Concomitant]
     Active Substance: VALSARTAN
     Dates: start: 20180801

REACTIONS (1)
  - Abdominal pain upper [Not Recovered/Not Resolved]

NARRATIVE: CASE EVENT DATE: 2018
